FAERS Safety Report 26199976 (Version 1)
Quarter: 2025Q4

REPORT INFORMATION
  Report Type: Report from Study
  Country: EU (occurrence: EU)
  Receive Date: 20251225
  Receipt Date: 20251225
  Transmission Date: 20260117
  Serious: Yes (Other)
  Sender: AMGEN
  Company Number: EU-AMGEN-DEUNI2025244797

PATIENT
  Age: 55 Year
  Sex: Male

DRUGS (3)
  1. TEPROTUMUMAB [Suspect]
     Active Substance: TEPROTUMUMAB
     Indication: Inflammation
     Dosage: UNK
     Route: 065
     Dates: start: 20250911, end: 20250911
  2. TEPROTUMUMAB [Suspect]
     Active Substance: TEPROTUMUMAB
     Dosage: UNK, LAST INFUSION
     Route: 065
     Dates: start: 20251218
  3. MYCOPHENOLATE MOFETIL [Concomitant]
     Active Substance: MYCOPHENOLATE MOFETIL
     Dosage: 360 MILLIGRAM, BID FOR TWO WEEK

REACTIONS (2)
  - Therapy interrupted [Recovered/Resolved]
  - Weight increased [Unknown]

NARRATIVE: CASE EVENT DATE: 20250911
